FAERS Safety Report 18382515 (Version 1)
Quarter: 2020Q4

REPORT INFORMATION
  Report Type: Spontaneous
  Country: US (occurrence: US)
  Receive Date: 20201014
  Receipt Date: 20201014
  Transmission Date: 20210114
  Serious: Yes (Disabling)
  Sender: FDA-Public Use
  Company Number: None

PATIENT
  Age: 31 Year
  Sex: Female
  Weight: 41.85 kg

DRUGS (1)
  1. DYSPORT [Suspect]
     Active Substance: ABOBOTULINUMTOXINA
     Indication: SKIN WRINKLING
     Dosage: ?          OTHER STRENGTH:20 UNITS;OTHER FREQUENCY:ONCE;?
     Route: 030

REACTIONS (8)
  - Head discomfort [None]
  - Dry eye [None]
  - Fatigue [None]
  - Feeling abnormal [None]
  - Panic attack [None]
  - Diarrhoea [None]
  - Nausea [None]
  - Headache [None]

NARRATIVE: CASE EVENT DATE: 20201006
